FAERS Safety Report 5887749-9 (Version None)
Quarter: 2008Q3

REPORT INFORMATION
  Report Type: 
  Country: None (occurrence: None)
  Receive Date: 20080918
  Receipt Date: 20080910
  Transmission Date: 20090109
  Serious: Yes (Other)
  Sender: FDA-Public Use
  Company Number: US-ASTRAZENECA-2008UW19005

PATIENT
  Age: 72 Year
  Sex: Female

DRUGS (8)
  1. PRILOSEC OTC [Suspect]
     Dosage: 2 TABLETS ONCE DAILY
     Route: 048
     Dates: start: 20080810, end: 20080910
  2. OTC COUGH MED [Concomitant]
  3. PHENOBARBITAL TAB [Concomitant]
  4. ATENOLOL [Concomitant]
  5. MORPHINE [Concomitant]
  6. LASIX [Concomitant]
  7. DIAZEPAM [Concomitant]
  8. ANTIBIOTICS [Concomitant]
     Indication: PNEUMONIA

REACTIONS (3)
  - DIARRHOEA [None]
  - HAEMOPTYSIS [None]
  - HEADACHE [None]
